FAERS Safety Report 10377518 (Version 1)
Quarter: 2014Q3

REPORT INFORMATION
  Report Type: Spontaneous
  Country: US (occurrence: None)
  Receive Date: 20140811
  Receipt Date: 20140811
  Transmission Date: 20150326
  Serious: Yes (Other)
  Sender: FDA-Public Use
  Company Number: None

PATIENT
  Age: 61 Year
  Sex: Female

DRUGS (1)
  1. AFINITOR [Suspect]
     Active Substance: EVEROLIMUS
     Indication: NEOPLASM MALIGNANT
     Dosage: 1 TABLET DAILY PO
     Route: 048
     Dates: start: 20140716

REACTIONS (2)
  - Skin odour abnormal [None]
  - Dysgeusia [None]

NARRATIVE: CASE EVENT DATE: 20140801
